FAERS Safety Report 19745445 (Version 1)
Quarter: 2021Q3

REPORT INFORMATION
  Report Type: Spontaneous
  Country: CA (occurrence: CA)
  Receive Date: 20210825
  Receipt Date: 20210825
  Transmission Date: 20211014
  Serious: Yes (Hospitalization, Other)
  Sender: FDA-Public Use
  Company Number: CA-PFIZER INC-202101059242

PATIENT
  Age: 79 Year
  Sex: Female

DRUGS (1)
  1. SULFASALAZINE. [Suspect]
     Active Substance: SULFASALAZINE
     Dosage: 500 MG, 2X/DAY

REACTIONS (5)
  - Decreased appetite [Unknown]
  - Haematochezia [Unknown]
  - Arthralgia [Not Recovered/Not Resolved]
  - Cerebrovascular accident [Recovered/Resolved]
  - Weight decreased [Unknown]
